FAERS Safety Report 9702777 (Version 1)
Quarter: 2013Q4

REPORT INFORMATION
  Report Type: Spontaneous
  Country: US (occurrence: US)
  Receive Date: 20131121
  Receipt Date: 20131121
  Transmission Date: 20140711
  Serious: Yes (Death)
  Sender: FDA-Public Use
  Company Number: US-GLAXOSMITHKLINE-A1050238A

PATIENT
  Age: 72 Year
  Sex: Female

DRUGS (2)
  1. ADVAIR [Suspect]
     Indication: BRONCHITIS CHRONIC
     Route: 055
  2. COMBIVENT [Concomitant]

REACTIONS (2)
  - Pneumonia [Fatal]
  - Off label use [Unknown]
